FAERS Safety Report 4962237-2 (Version None)
Quarter: 2006Q2

REPORT INFORMATION
  Report Type: 
  Country: None (occurrence: None)
  Receive Date: 20060404
  Receipt Date: 20050408
  Transmission Date: 20061013
  Serious: Yes (Hospitalization, Disabling, Other)
  Sender: FDA-Public Use
  Company Number: US-MERCK-0504USA01308

PATIENT
  Age: 64 Year
  Sex: Female
  Weight: 91 kg

DRUGS (2)
  1. VIOXX [Suspect]
     Indication: ARTHRITIS
     Route: 048
     Dates: start: 20000101, end: 20040101
  2. TYLENOL (CAPLET) [Concomitant]
     Route: 065

REACTIONS (32)
  - ANAEMIA [None]
  - ANGINA PECTORIS [None]
  - ARTHROPOD STING [None]
  - ASTHENIA [None]
  - BACTERAEMIA [None]
  - CAROTID ARTERY DISEASE [None]
  - CEREBROVASCULAR ACCIDENT [None]
  - CHEST PAIN [None]
  - CONTUSION [None]
  - CONVULSION [None]
  - CORONARY ARTERY DISEASE [None]
  - DEHYDRATION [None]
  - DELIRIUM [None]
  - DEPRESSION [None]
  - DIARRHOEA [None]
  - DIZZINESS [None]
  - DRUG HYPERSENSITIVITY [None]
  - DYSPHONIA [None]
  - FALL [None]
  - GASTROENTERITIS SALMONELLA [None]
  - HEADACHE [None]
  - HYPOAESTHESIA [None]
  - HYPOKALAEMIA [None]
  - HYPONATRAEMIA [None]
  - HYPOTHYROIDISM [None]
  - LIP AND/OR ORAL CAVITY CANCER [None]
  - MITRAL VALVE PROLAPSE [None]
  - MUSCULOSKELETAL CHEST PAIN [None]
  - MYOCARDIAL INFARCTION [None]
  - ORAL SOFT TISSUE DISORDER [None]
  - THROAT CANCER [None]
  - VOMITING [None]
